FAERS Safety Report 5705084-6 (Version None)
Quarter: 2008Q2

REPORT INFORMATION
  Report Type: 
  Country: None (occurrence: None)
  Receive Date: 20080410
  Receipt Date: 20080327
  Transmission Date: 20081010
  Serious: Yes (Hospitalization)
  Sender: FDA-Public Use
  Company Number: 2008000730

PATIENT
  Age: 75 Year
  Sex: Female

DRUGS (1)
  1. TARCEVA [Suspect]
     Indication: LUNG NEOPLASM MALIGNANT
     Dosage: (150 MG, QD), ORAL
     Route: 048

REACTIONS (4)
  - HYPERCAPNIA [None]
  - RENAL FAILURE [None]
  - SEPSIS [None]
  - SLEEP APNOEA SYNDROME [None]
